FAERS Safety Report 23522733 (Version 1)
Quarter: 2024Q1

REPORT INFORMATION
  Report Type: Spontaneous
  Country: US (occurrence: None)
  Receive Date: 20240214
  Receipt Date: 20240214
  Transmission Date: 20240409
  Serious: Yes (Hospitalization)
  Sender: FDA-Public Use
  Company Number: None

PATIENT
  Age: 69 Year
  Sex: Female
  Weight: 53.5 kg

DRUGS (2)
  1. CARBOPLATIN [Suspect]
     Active Substance: CARBOPLATIN
     Dates: end: 20220622
  2. PACLITAXEL [Suspect]
     Active Substance: PACLITAXEL
     Dates: end: 20220622

REACTIONS (15)
  - Subcapsular splenic haematoma [None]
  - Shock haemorrhagic [None]
  - Nausea [None]
  - Vomiting [None]
  - Abdominal distension [None]
  - Dehydration [None]
  - Tachycardia [None]
  - Thrombocytopenia [None]
  - Pneumonia [None]
  - Pleural effusion [None]
  - Platelet count decreased [None]
  - Thrombophlebitis [None]
  - Immune thrombocytopenia [None]
  - Pylorus dilation procedure [None]
  - Splenectomy [None]

NARRATIVE: CASE EVENT DATE: 20220915
